FAERS Safety Report 6945656-4 (Version None)
Quarter: 2010Q3

REPORT INFORMATION
  Report Type: 
  Country: None (occurrence: None)
  Receive Date: 20100827
  Receipt Date: 20100819
  Transmission Date: 20110219
  Serious: Yes (Other)
  Sender: FDA-Public Use
  Company Number: US-MERCK-1008USA02785

PATIENT
  Age: 61 Year
  Sex: Female

DRUGS (10)
  1. COZAAR [Suspect]
     Indication: HYPERTENSION
     Route: 048
     Dates: start: 20100624
  2. COZAAR [Suspect]
     Route: 048
     Dates: start: 19860101, end: 20100623
  3. ALBUTEROL [Concomitant]
     Route: 065
  4. PULMICORT [Concomitant]
     Route: 065
  5. LORAZEPAM [Concomitant]
     Route: 065
  6. PAXIL [Concomitant]
     Route: 065
  7. WELLBUTRIN [Concomitant]
     Route: 065
  8. FUROSEMIDE [Concomitant]
     Route: 065
  9. KLOR-CON [Concomitant]
     Route: 065
  10. HYDROCHLOROTHIAZIDE AND TRIAMTERENE [Concomitant]
     Route: 065

REACTIONS (3)
  - MALAISE [None]
  - SWOLLEN TONGUE [None]
  - WEIGHT INCREASED [None]
